FAERS Safety Report 6040781-7 (Version None)
Quarter: 2009Q1

REPORT INFORMATION
  Report Type: 
  Country: None (occurrence: None)
  Receive Date: 20090116
  Receipt Date: 20080523
  Transmission Date: 20090719
  Serious: No
  Sender: FDA-Public Use
  Company Number: US-BRISTOL-MYERS SQUIBB COMPANY-14203293

PATIENT
  Age: 6 Year
  Sex: Male

DRUGS (2)
  1. ABILIFY [Suspect]
     Indication: ATTENTION DEFICIT/HYPERACTIVITY DISORDER
  2. CLONIDINE [Concomitant]

REACTIONS (4)
  - BINGE EATING [None]
  - INCREASED APPETITE [None]
  - VOMITING [None]
  - WEIGHT INCREASED [None]
